FAERS Safety Report 9102505 (Version 1)
Quarter: 2013Q1

REPORT INFORMATION
  Report Type: Spontaneous
  Country: US (occurrence: US)
  Receive Date: 20130219
  Receipt Date: 20130219
  Transmission Date: 20140127
  Serious: Yes (Other)
  Sender: FDA-Public Use
  Company Number: US-ASTRAZENECA-2013SE10788

PATIENT
  Age: 46 Year
  Sex: Male
  Weight: 86.2 kg

DRUGS (8)
  1. SYMBICORT PMDI [Suspect]
     Indication: LUNG DISORDER
     Dosage: TWO PUFFS BID
     Route: 055
     Dates: start: 201211
  2. POTASSIUM [Concomitant]
     Dates: end: 201301
  3. TAMIFLU [Concomitant]
     Indication: INFLUENZA
     Dates: start: 20130121
  4. PANTOPRAZOLE SOD [Concomitant]
     Indication: GASTROOESOPHAGEAL REFLUX DISEASE
     Dates: start: 201211
  5. XOPENEX INHALER [Concomitant]
     Indication: PROPHYLAXIS
     Route: 055
     Dates: start: 201211
  6. XOPENEX NEBULIZER [Concomitant]
     Indication: LUNG DISORDER
     Dosage: AS REQUIRED
     Route: 055
     Dates: start: 201211
  7. XOPENEX NEBULIZER [Concomitant]
     Indication: LUNG DISORDER
     Dosage: AS REQUIRED
     Route: 055
  8. ASPIRIN [Concomitant]
     Indication: ANTIPLATELET THERAPY
     Route: 048
     Dates: start: 201301

REACTIONS (5)
  - Hernia [Recovered/Resolved]
  - Gastrooesophageal reflux disease [Not Recovered/Not Resolved]
  - Heart rate increased [Not Recovered/Not Resolved]
  - Cardiac disorder [Recovered/Resolved]
  - Sleep disorder [Unknown]
